FAERS Safety Report 4838111-9 (Version None)
Quarter: 2005Q4

REPORT INFORMATION
  Report Type: 
  Country: None (occurrence: None)
  Receive Date: 20051128
  Receipt Date: 20051115
  Transmission Date: 20060501
  Serious: Yes (Hospitalization, Other)
  Sender: FDA-Public Use
  Company Number: AU-NOVOPROD-248598

PATIENT
  Age: 61 Year
  Sex: Female

DRUGS (3)
  1. NOVOMIX 30 FLEXPEN [Suspect]
     Indication: ILL-DEFINED DISORDER
     Dates: start: 20031001, end: 20050101
  2. DIAMICRON [Concomitant]
  3. DIAFORMIN [Concomitant]

REACTIONS (2)
  - FALL [None]
  - FEMUR FRACTURE [None]
